FAERS Safety Report 16063827 (Version 3)
Quarter: 2019Q2

REPORT INFORMATION
  Report Type: Spontaneous
  Country: US (occurrence: US)
  Receive Date: 20190312
  Receipt Date: 20190613
  Transmission Date: 20190711
  Serious: Yes (Disabling, Other)
  Sender: FDA-Public Use
  Company Number: US-ASTRAZENECA-2019SE37601

PATIENT
  Age: 25567 Day
  Sex: Female
  Weight: 55.3 kg

DRUGS (1)
  1. IMFINZI [Suspect]
     Active Substance: DURVALUMAB
     Indication: LUNG NEOPLASM MALIGNANT
     Route: 042
     Dates: start: 20181218

REACTIONS (10)
  - Chronic obstructive pulmonary disease [Unknown]
  - Hyperkalaemia [Unknown]
  - Acute myocardial infarction [Unknown]
  - Atrioventricular block first degree [Unknown]
  - Atrial fibrillation [Unknown]
  - Pancreatitis [Unknown]
  - Acute kidney injury [Unknown]
  - Diabetic ketoacidosis [Unknown]
  - Meningioma [Unknown]
  - Type 1 diabetes mellitus [Unknown]

NARRATIVE: CASE EVENT DATE: 20181219
